FAERS Safety Report 6074176-7 (Version None)
Quarter: 2009Q1

REPORT INFORMATION
  Report Type: 
  Country: None (occurrence: None)
  Receive Date: 20090211
  Receipt Date: 20090203
  Transmission Date: 20090719
  Serious: Yes (Other)
  Sender: FDA-Public Use
  Company Number: IE-ABBOTT-09P-229-0501374-00

PATIENT
  Sex: Male

DRUGS (2)
  1. VALPROATE SODIUM [Suspect]
     Indication: AFFECTIVE DISORDER
     Dosage: ONCE DAILY AT NIGHT
     Route: 048
  2. VALPROATE SODIUM [Suspect]
     Dosage: DIVIDED DOSES THROUGHOUT DAY
     Route: 048

REACTIONS (2)
  - HALLUCINATION [None]
  - SLEEP DISORDER [None]
